FAERS Safety Report 24688915 (Version 1)
Quarter: 2024Q4

REPORT INFORMATION
  Report Type: Spontaneous
  Country: RU (occurrence: RU)
  Receive Date: 20241203
  Receipt Date: 20241203
  Transmission Date: 20250114
  Serious: Yes (Other)
  Sender: NOVARTIS
  Company Number: RU-002147023-NVSC2024RU229256

PATIENT
  Age: 42 Year
  Sex: Female

DRUGS (1)
  1. RIBOCICLIB [Suspect]
     Active Substance: RIBOCICLIB
     Indication: Breast cancer metastatic
     Dosage: 3 DOSAGE FORM (OF 200 MG(600 MG)/DAY)
     Route: 048
     Dates: start: 20241020, end: 20241113

REACTIONS (3)
  - Swelling [Unknown]
  - Pain [Unknown]
  - Erythema [Unknown]
